FAERS Safety Report 6900918-1 (Version None)
Quarter: 2010Q3

REPORT INFORMATION
  Report Type: 
  Country: None (occurrence: None)
  Receive Date: 20100803
  Receipt Date: 20100727
  Transmission Date: 20110219
  Serious: Yes (Other)
  Sender: FDA-Public Use
  Company Number: A0873326A

PATIENT
  Age: 29 Year
  Sex: Female

DRUGS (10)
  1. COMBIVIR [Suspect]
     Indication: HIV INFECTION
     Route: 048
     Dates: start: 20050922
  2. VIRACEPT [Suspect]
     Indication: HIV INFECTION
     Route: 048
     Dates: start: 20050922, end: 20060117
  3. HYOSCINE [Concomitant]
  4. METOCLOPRAMIDE [Concomitant]
  5. MISOPROSTOL [Concomitant]
  6. MORPHINE [Concomitant]
  7. OXYTOCIN [Concomitant]
  8. ACETAMINOPHEN [Concomitant]
  9. PETHIDINE HYDROCHLORIDE [Concomitant]
  10. TOBACCO [Concomitant]

REACTIONS (2)
  - ABORTION INDUCED [None]
  - DRUG EXPOSURE DURING PREGNANCY [None]
